FAERS Safety Report 7770931-3 (Version None)
Quarter: 2011Q3

REPORT INFORMATION
  Report Type: 
  Country: None (occurrence: None)
  Receive Date: 20110922
  Receipt Date: 20101011
  Transmission Date: 20111222
  Serious: No
  Sender: FDA-Public Use
  Company Number: US-ASTRAZENECA-2010SE47953

PATIENT

DRUGS (4)
  1. SEROQUEL [Suspect]
     Dosage: 100 MG
     Route: 048
  2. SEROQUEL [Suspect]
     Dosage: 400 MG
     Route: 048
  3. SEROQUEL [Suspect]
     Dosage: 200 MG
     Route: 048
  4. BENZTROPINE MESYLATE [Concomitant]

REACTIONS (3)
  - DRUG DOSE OMISSION [None]
  - GENERAL PHYSICAL HEALTH DETERIORATION [None]
  - PAIN [None]
